FAERS Safety Report 24148848 (Version 2)
Quarter: 2024Q3

REPORT INFORMATION
  Report Type: Spontaneous
  Country: US (occurrence: US)
  Receive Date: 20240729
  Receipt Date: 20240820
  Transmission Date: 20241017
  Serious: Yes (Other)
  Sender: PFIZER
  Company Number: US-PFIZER INC-202400223984

PATIENT
  Age: 63 Year
  Sex: Female
  Weight: 54.43 kg

DRUGS (4)
  1. ZAVZPRET [Suspect]
     Active Substance: ZAVEGEPANT HYDROCHLORIDE
     Indication: Migraine
     Dosage: 10 MG, SINGLE
     Route: 045
     Dates: start: 20240720, end: 20240720
  2. ZAVZPRET [Suspect]
     Active Substance: ZAVEGEPANT HYDROCHLORIDE
     Indication: Headache
  3. PREDNISONE [Concomitant]
     Active Substance: PREDNISONE
     Indication: COVID-19
     Dosage: UNK
  4. PREDNISONE [Concomitant]
     Active Substance: PREDNISONE
     Indication: Pneumonia

REACTIONS (6)
  - Pulmonary pain [Recovering/Resolving]
  - Dysphagia [Recovering/Resolving]
  - Illness [Recovering/Resolving]
  - Dyspnoea [Recovering/Resolving]
  - Nasal disorder [Recovering/Resolving]
  - Vomiting [Recovered/Resolved]

NARRATIVE: CASE EVENT DATE: 20240720
